FAERS Safety Report 9827153 (Version 1)
Quarter: 2013Q4

REPORT INFORMATION
  Report Type: Spontaneous
  Country: US (occurrence: None)
  Receive Date: 20131112
  Receipt Date: 20131112
  Transmission Date: 20140711
  Serious: Yes (Other)
  Sender: FDA-Public Use
  Company Number: US-013081

PATIENT
  Age: 45 Year
  Sex: Male
  Weight: 92.99 kg

DRUGS (9)
  1. PICO-SALAX [Suspect]
     Indication: BOWEL PREPARATION
     Dosage: (FIRST PACKET AT 3PM, SECOND AT 5PM)
     Dates: start: 20130918, end: 20130918
  2. LYRICA [Concomitant]
  3. DILAUDID [Concomitant]
  4. XANAX [Concomitant]
  5. DILAUDID [Concomitant]
  6. XANAX [Concomitant]
  7. BACLOFEN [Concomitant]
  8. AMBIEN [Concomitant]
  9. SEROQUEL [Concomitant]

REACTIONS (1)
  - Abdominal distension [None]
